FAERS Safety Report 9688668 (Version 3)
Quarter: 2013Q4

REPORT INFORMATION
  Report Type: Spontaneous
  Country: GB (occurrence: GB)
  Receive Date: 20131114
  Receipt Date: 20131230
  Transmission Date: 20140711
  Serious: Yes (Other)
  Sender: FDA-Public Use
  Company Number: PHFR2013GB005900

PATIENT
  Age: 40 Year
  Sex: Male
  Weight: 72 kg

DRUGS (4)
  1. CUBICIN [Suspect]
     Indication: ENDOCARDITIS STAPHYLOCOCCAL
     Dosage: 6 MG/KG, UNK
     Dates: start: 201008, end: 201009
  2. CUBICIN [Suspect]
     Indication: OFF LABEL USE
     Dosage: 10 MG/KG, UNK
     Dates: start: 201010, end: 201106
  3. RIFAMPICIN [Suspect]
     Indication: ENDOCARDITIS STAPHYLOCOCCAL
     Dates: start: 201002, end: 201109
  4. VANCOMYCIN [Suspect]
     Dosage: 4000 MG, UNK
     Route: 042
     Dates: start: 201002, end: 201010

REACTIONS (5)
  - Cardiac valve vegetation [Recovering/Resolving]
  - Embolism [Recovering/Resolving]
  - Staphylococcal bacteraemia [Recovered/Resolved]
  - Endocarditis staphylococcal [Recovered/Resolved]
  - No therapeutic response [Unknown]
